FAERS Safety Report 11886286 (Version 2)
Quarter: 2016Q4

REPORT INFORMATION
  Report Type: Spontaneous
  Country: FR (occurrence: FR)
  Receive Date: 20160104
  Receipt Date: 20161107
  Transmission Date: 20170206
  Serious: Yes (Disabling)
  Sender: FDA-Public Use
  Company Number: FR-BAYER-2015-495016

PATIENT
  Age: 43 Year
  Sex: Male

DRUGS (1)
  1. IZILOX [Suspect]
     Active Substance: MOXIFLOXACIN HYDROCHLORIDE
     Indication: SINUSITIS
     Dosage: 400 MG, QD
     Route: 048
     Dates: start: 201509, end: 201509

REACTIONS (4)
  - Mydriasis [Not Recovered/Not Resolved]
  - Visual acuity reduced [Recovered/Resolved]
  - Iris transillumination defect [Unknown]
  - Uveitis [Recovered/Resolved]

NARRATIVE: CASE EVENT DATE: 201509
